FAERS Safety Report 6736258-3 (Version None)
Quarter: 2010Q2

REPORT INFORMATION
  Report Type: 
  Country: None (occurrence: None)
  Receive Date: 20100520
  Receipt Date: 20100520
  Transmission Date: 20101027
  Serious: Yes (Other)
  Sender: FDA-Public Use
  Company Number: None

PATIENT
  Age: 38 Year
  Sex: Male
  Weight: 70.6 kg

DRUGS (2)
  1. ETRAVIRINE [Suspect]
     Indication: HIV INFECTION
     Dosage: 400 MG PO Q DAY
     Route: 048
     Dates: start: 20100107
  2. TRUVADA [Suspect]
     Dosage: 200/300 MG PO Q DAY
     Route: 048
     Dates: start: 20100107

REACTIONS (1)
  - SQUAMOUS CELL CARCINOMA OF SKIN [None]
